FAERS Safety Report 13540410 (Version 3)
Quarter: 2017Q2

REPORT INFORMATION
  Report Type: Report from Study
  Country: DE (occurrence: DE)
  Receive Date: 20170512
  Receipt Date: 20170602
  Transmission Date: 20170830
  Serious: Yes (Death, Life-Threatening, Hospitalization, Disabling, Other)
  Sender: FDA-Public Use
  Company Number: PHHY2017DE001309

PATIENT
  Age: 67 Year
  Sex: Female
  Weight: 58 kg

DRUGS (16)
  1. PKC412 [Suspect]
     Active Substance: MIDOSTAURIN
     Dosage: 50 MG, BID
     Route: 048
     Dates: start: 20170404, end: 20170416
  2. CYTARABIN [Concomitant]
     Active Substance: CYTARABINE
     Indication: ACUTE LEUKAEMIA
     Dosage: 2X1000 MG/M2, D1, 3, 5
     Route: 065
     Dates: start: 20170127, end: 20170131
  3. MEROPENEM. [Concomitant]
     Active Substance: MEROPENEM
     Indication: PRODUCT USED FOR UNKNOWN INDICATION
     Dosage: 3 G, QD
     Route: 065
     Dates: start: 20161122, end: 20161205
  4. LINEZOLID. [Concomitant]
     Active Substance: LINEZOLID
     Indication: ENTEROCOCCAL SEPSIS
     Dosage: UNK
     Route: 065
  5. DAUNORUBICIN [Concomitant]
     Active Substance: DAUNORUBICIN
     Indication: ACUTE LEUKAEMIA
     Dosage: 60 MG/M2, D1-3
     Route: 065
     Dates: start: 20161214, end: 20161220
  6. CYTARABIN [Concomitant]
     Active Substance: CYTARABINE
     Dosage: 2X1000 MG/M2
     Route: 065
     Dates: start: 20170328
  7. NOXAFIL [Concomitant]
     Active Substance: POSACONAZOLE
     Indication: PRODUCT USED FOR UNKNOWN INDICATION
     Dosage: UNK
     Route: 065
  8. PKC412 [Suspect]
     Active Substance: MIDOSTAURIN
     Dosage: 50 MG, BID
     Route: 048
     Dates: start: 20170203, end: 20170215
  9. CYTARABIN [Concomitant]
     Active Substance: CYTARABINE
     Indication: LUNG CONSOLIDATION
     Dosage: 200 MG/M2, UNK (D1-7)
     Route: 065
     Dates: start: 20161214, end: 20161220
  10. TAZOBACTAM [Concomitant]
     Active Substance: TAZOBACTAM
     Indication: SEPSIS
     Dosage: 1.5 MG, QD
     Route: 065
     Dates: start: 20161122, end: 20161205
  11. VANCOMYCIN [Concomitant]
     Active Substance: VANCOMYCIN
     Indication: STAPHYLOCOCCAL INFECTION
     Route: 065
     Dates: start: 20161224
  12. LEVOFLOXACINE [Concomitant]
     Active Substance: LEVOFLOXACIN
     Indication: PRODUCT USED FOR UNKNOWN INDICATION
     Route: 065
  13. PIPERACILLIN [Concomitant]
     Active Substance: PIPERACILLIN
     Indication: SEPSIS
     Dosage: 12 MG, QD
     Route: 065
     Dates: start: 20161122, end: 20161205
  14. PKC412 [Suspect]
     Active Substance: MIDOSTAURIN
     Indication: ACUTE MYELOID LEUKAEMIA
     Dosage: 50 MG, BID
     Route: 048
     Dates: start: 20161221, end: 20170102
  15. MEROPENEM. [Concomitant]
     Active Substance: MEROPENEM
     Dosage: 3 G, QD
     Route: 065
     Dates: start: 20161205, end: 20161208
  16. MEROPENEM. [Concomitant]
     Active Substance: MEROPENEM
     Dosage: 3 G, UNK
     Route: 065
     Dates: start: 20161223, end: 20161230

REACTIONS (41)
  - Neutropenia [Unknown]
  - Pyrexia [Recovered/Resolved]
  - Agitation [Unknown]
  - Neutropenic sepsis [Fatal]
  - Enterococcal infection [Recovered/Resolved]
  - Pneumonia [Unknown]
  - Hypotension [Unknown]
  - Lung abscess [Unknown]
  - Thrombocytopenia [Unknown]
  - Disseminated intravascular coagulation [Unknown]
  - Enterobacter sepsis [Unknown]
  - Citrobacter infection [Recovered/Resolved]
  - Increased viscosity of bronchial secretion [Unknown]
  - Nervous system disorder [Unknown]
  - Rash [Recovered/Resolved]
  - Petechiae [Recovered/Resolved]
  - Blood creatine phosphokinase increased [Recovered/Resolved]
  - Acute myeloid leukaemia recurrent [Fatal]
  - Respiratory failure [Not Recovered/Not Resolved]
  - Pulmonary haemorrhage [Unknown]
  - Acute kidney injury [Unknown]
  - Pain [Unknown]
  - Drug eruption [Recovered/Resolved]
  - Oral herpes [Recovered/Resolved]
  - Influenza [Recovered/Resolved]
  - Pseudomonas infection [Recovered/Resolved]
  - Anaemia [Unknown]
  - Staphylococcal sepsis [Recovered/Resolved]
  - Staphylococcal infection [Recovered/Resolved]
  - Leukopenia [Recovered/Resolved]
  - Sepsis [Unknown]
  - Transaminases increased [Unknown]
  - Rash [Recovering/Resolving]
  - Headache [Recovered/Resolved]
  - Pyrexia [Unknown]
  - Weight increased [Recovered/Resolved]
  - Electrocardiogram QT prolonged [Recovered/Resolved]
  - Haemorrhage [Unknown]
  - Herpes zoster [Unknown]
  - Thrombocytopenia [Recovered/Resolved]
  - Atelectasis [Unknown]

NARRATIVE: CASE EVENT DATE: 201612
